FAERS Safety Report 12109958 (Version 1)
Quarter: 2016Q1

REPORT INFORMATION
  Report Type: Spontaneous
  Country: CH (occurrence: CH)
  Receive Date: 20160224
  Receipt Date: 20160224
  Transmission Date: 20160526
  Serious: Yes (Other)
  Sender: FDA-Public Use
  Company Number: CH-TEVA-636759ISR

PATIENT
  Age: 10 Year
  Sex: Male

DRUGS (13)
  1. HYDROCORTISONE. [Concomitant]
     Active Substance: HYDROCORTISONE
     Route: 048
  2. VALTREX [Concomitant]
     Active Substance: VALACYCLOVIR HYDROCHLORIDE
     Dosage: 1000 MILLIGRAM DAILY; STRENGTH 500MG, 11.82MG / KG
     Route: 048
  3. LANTUS [Concomitant]
     Active Substance: INSULIN GLARGINE
     Dosage: 6 IU (INTERNATIONAL UNIT) DAILY; UNSPECIFIED STRENGTH
     Route: 058
  4. LASIX [Concomitant]
     Active Substance: FUROSEMIDE
     Dosage: 60 MILLIGRAM DAILY; UNSPECIFIED STRENGTH, 0.5 MG/KG
     Route: 048
  5. AMBISOME [Concomitant]
     Active Substance: AMPHOTERICIN B
     Dosage: INFUSION AMPULES, DRY VIALS/BOTTLES, UNSPECIFIED STRENGTH
     Route: 040
  6. GLIVEC [Concomitant]
     Active Substance: IMATINIB MESYLATE
     Dosage: 75 MILLIGRAM DAILY; UNSPECIFIED STRENGTH
     Route: 048
  7. VANCOCIN [Suspect]
     Active Substance: VANCOMYCIN HYDROCHLORIDE
     Route: 040
     Dates: start: 20160107
  8. SANDIMMUN [Concomitant]
     Active Substance: CYCLOSPORINE
     Dosage: 12 MILLIGRAM DAILY; INFUSION AMPOULES, STRENGTH 50MG, 0.1519MG/KG
     Route: 040
  9. NEXIUM [Concomitant]
     Active Substance: ESOMEPRAZOLE MAGNESIUM
     Dosage: 40 MILLIGRAM DAILY; UNSPECIFIED STRENGTH, 1 MG/KG
     Route: 048
  10. BACTRIM [Concomitant]
     Active Substance: SULFAMETHOXAZOLE\TRIMETHOPRIM
     Dosage: STRENGTH 200MG/40MG, 4.005MG (TM) /KG; 160 MG 3X/D
     Route: 048
  11. PIPERACILLIN AND TAZOBACTAM [Concomitant]
     Active Substance: PIPERACILLIN SODIUM\TAZOBACTAM SODIUM
     Dosage: 13.5 GRAM DAILY; UNSPECIFIED STRENGTH, 4.5 G OF PIPERACILLIN/TAZOBACTAM 3X/D
     Route: 040
     Dates: start: 20160105, end: 20160107
  12. TEICOPLANINE [Concomitant]
     Active Substance: TEICOPLANIN
     Dosage: 200 MILLIGRAM DAILY; UNSPECIFIED STRENGTH, 5.076MG/KG
     Route: 040
  13. ZOFRAN [Concomitant]
     Active Substance: ONDANSETRON HYDROCHLORIDE
     Dosage: 24 MILLIGRAM DAILY; INFUSION AMPOULES, UNSPECIFIED STRENGTH, 0.2025MG/KG
     Route: 040

REACTIONS (1)
  - Von Willebrand^s factor activity decreased [Not Recovered/Not Resolved]

NARRATIVE: CASE EVENT DATE: 20160122
